FAERS Safety Report 26134412 (Version 1)
Quarter: 2025Q4

REPORT INFORMATION
  Report Type: Spontaneous
  Country: US (occurrence: US)
  Receive Date: 20251209
  Receipt Date: 20251209
  Transmission Date: 20260118
  Serious: Yes (Life-Threatening, Hospitalization)
  Sender: STRIDES
  Company Number: None

PATIENT
  Age: 59 Year
  Sex: Male

DRUGS (1)
  1. PREDNISONE [Suspect]
     Active Substance: PREDNISONE
     Indication: Bursitis
     Route: 048

REACTIONS (5)
  - Acute kidney injury [Unknown]
  - Respiratory failure [Unknown]
  - Catecholamine crisis [Unknown]
  - Adrenal haemorrhage [Unknown]
  - Phaeochromocytoma crisis [Unknown]
